FAERS Safety Report 10068379 (Version 2)
Quarter: 2014Q2

REPORT INFORMATION
  Report Type: Spontaneous
  Country: TW (occurrence: TW)
  Receive Date: 20140409
  Receipt Date: 20140409
  Transmission Date: 20141212
  Serious: Yes (Hospitalization)
  Sender: FDA-Public Use
  Company Number: TW-SA-2014SA040104

PATIENT
  Age: 47 Year
  Sex: Female

DRUGS (3)
  1. DOCETAXEL [Suspect]
     Indication: INVASIVE DUCTAL BREAST CARCINOMA
     Dosage: INFUSION, VIA LEFT SUBCLAVIAN VEIN
     Dates: start: 201303
  2. SALINE [Concomitant]
     Dosage: 0.9%
     Dates: start: 201303
  3. CORTICOSTEROIDS [Concomitant]
     Route: 061
     Dates: start: 2013, end: 2013

REACTIONS (11)
  - Catheter site extravasation [Recovering/Resolving]
  - Pain [Recovering/Resolving]
  - Tenderness [Unknown]
  - Oedema [Unknown]
  - Sensory disturbance [Unknown]
  - Swelling [Recovering/Resolving]
  - Joint range of motion decreased [Recovered/Resolved]
  - Erythema [Recovering/Resolving]
  - Pruritus [Unknown]
  - Skin exfoliation [Unknown]
  - Skin hyperpigmentation [Unknown]
